FAERS Safety Report 5585577-5 (Version None)
Quarter: 2008Q1

REPORT INFORMATION
  Report Type: 
  Country: None (occurrence: None)
  Receive Date: 20080109
  Receipt Date: 20080107
  Transmission Date: 20080703
  Serious: Yes (Death, Hospitalization, Other)
  Sender: FDA-Public Use
  Company Number: B0439519A

PATIENT
  Age: 17 Year
  Sex: Female

DRUGS (25)
  1. FLOLAN [Suspect]
     Indication: EISENMENGER'S SYNDROME
     Route: 042
     Dates: start: 20020801
  2. TRACLEER [Suspect]
     Indication: PULMONARY HYPERTENSION
     Route: 048
     Dates: start: 20050811, end: 20051117
  3. WARFARIN SODIUM [Concomitant]
     Route: 048
  4. FUROSEMIDE [Concomitant]
     Route: 048
  5. SPIRONOLACTONE [Concomitant]
     Route: 048
  6. DIGOXIN [Concomitant]
     Route: 048
  7. ACARDI [Concomitant]
     Route: 048
  8. INHIBACE [Concomitant]
     Route: 048
  9. VIAGRA [Concomitant]
     Route: 048
     Dates: start: 20030901
  10. FERROMIA [Concomitant]
     Route: 048
  11. CORETEC [Concomitant]
     Route: 042
     Dates: start: 20050323, end: 20050331
  12. DOBUTAMINE HYDROCHLORIDE [Concomitant]
     Route: 042
     Dates: start: 20050323, end: 20050331
  13. MEXITIL [Concomitant]
     Route: 048
  14. FERO-GRADUMET [Concomitant]
     Route: 048
  15. TRICHLORMETHIAZIDE [Concomitant]
     Route: 048
  16. MILRINONE [Concomitant]
     Route: 042
  17. ALBUMIN (HUMAN) [Concomitant]
     Route: 042
  18. CONCENTRATED RED CELLS [Concomitant]
  19. PLATELETS [Concomitant]
  20. MIDAZOLAM HCL [Concomitant]
  21. FENTANYL [Concomitant]
  22. CEFAMEZIN [Concomitant]
  23. GASTER [Concomitant]
  24. FUTHAN [Concomitant]
  25. FERROMIA [Concomitant]
     Route: 048

REACTIONS (14)
  - BACTERAEMIA [None]
  - BRAIN NATRIURETIC PEPTIDE INCREASED [None]
  - CARDIAC FAILURE [None]
  - DIARRHOEA [None]
  - DYSPNOEA [None]
  - EPIGASTRIC DISCOMFORT [None]
  - GENERALISED OEDEMA [None]
  - HYPERTHYROIDISM [None]
  - MALAISE [None]
  - MULTI-ORGAN FAILURE [None]
  - OLIGURIA [None]
  - PULMONARY HYPERTENSION [None]
  - PYREXIA [None]
  - SEPSIS [None]
